FAERS Safety Report 8197021-2 (Version None)
Quarter: 2012Q1

REPORT INFORMATION
  Report Type: 
  Country: None (occurrence: None)
  Receive Date: 20120309
  Receipt Date: 20120228
  Transmission Date: 20120608
  Serious: Yes (Other)
  Sender: FDA-Public Use
  Company Number: US-ELI_LILLY_AND_COMPANY-US201201004751

PATIENT
  Sex: Female

DRUGS (11)
  1. FORTEO [Suspect]
     Indication: OSTEOPOROSIS
     Dosage: 20 UG, QD
     Route: 065
     Dates: start: 20120104
  2. AFEDITAB CR [Concomitant]
     Indication: CARDIAC DISORDER
     Dosage: UNK, QD
  3. ASPIRIN [Concomitant]
     Dosage: UNK, QD
  4. MUSCLE RELAXANTS [Concomitant]
     Dosage: UNK, TID
  5. CALCIUM [Concomitant]
     Dosage: 1800 MG, QD
  6. TYLENOL (CAPLET) [Concomitant]
     Dosage: UNK, QD
  7. FORTEO [Suspect]
     Dosage: 20 UG, QD
     Dates: end: 20120216
  8. ANALGESICS [Concomitant]
     Indication: PAIN
     Dosage: UNK, UNKNOWN
     Route: 065
  9. VITAMIN D [Concomitant]
     Dosage: 1000 U, QD
  10. OXYCODONE HCL AND ACETAMINOPHEN [Concomitant]
     Indication: PAIN
     Dosage: UNK, QD
  11. LOPRESSOR [Concomitant]
     Indication: CARDIAC DISORDER
     Dosage: UNK, QD

REACTIONS (15)
  - BONE PAIN [None]
  - DRY SKIN [None]
  - ALOPECIA [None]
  - LOCAL SWELLING [None]
  - MALAISE [None]
  - DYSSTASIA [None]
  - GASTROINTESTINAL DISORDER [None]
  - PAIN IN EXTREMITY [None]
  - HYPERSENSITIVITY [None]
  - PAIN [None]
  - HAIR GROWTH ABNORMAL [None]
  - ACARIASIS [None]
  - PRURITUS GENERALISED [None]
  - RASH ERYTHEMATOUS [None]
  - ERYTHEMA [None]
